FAERS Safety Report 17492270 (Version 1)
Quarter: 2020Q1

REPORT INFORMATION
  Report Type: Report from Study
  Country: DE (occurrence: DE)
  Receive Date: 20200303
  Receipt Date: 20200303
  Transmission Date: 20200409
  Serious: Yes (Hospitalization)
  Sender: FDA-Public Use
  Company Number: DE-AMGEN-DEUNI2020033717

PATIENT
  Age: 47 Year
  Sex: Female
  Weight: 63 kg

DRUGS (4)
  1. LENALIDOMIDE [Suspect]
     Active Substance: LENALIDOMIDE
     Indication: PLASMA CELL MYELOMA
     Dosage: 25 MILLIGRAM, QD
     Route: 048
     Dates: start: 20190417
  2. DEXAMETHASONE. [Suspect]
     Active Substance: DEXAMETHASONE
     Indication: PLASMA CELL MYELOMA
     Dosage: 40 MILLIGRAM, QD
     Route: 042
     Dates: start: 20190417
  3. ISATUXIMAB [Suspect]
     Active Substance: ISATUXIMAB
     Indication: PLASMA CELL MYELOMA
     Dosage: 10 MG/KG PER CHEMO REGIM
     Route: 042
     Dates: start: 20190417
  4. CARFILZOMIB [Suspect]
     Active Substance: CARFILZOMIB
     Indication: PLASMA CELL MYELOMA
     Dosage: 72 MILLIGRAM/SQ. METER, PER CHEMO REGIM
     Route: 042
     Dates: start: 20190417

REACTIONS (1)
  - Sinusitis [Recovered/Resolved]

NARRATIVE: CASE EVENT DATE: 20200206
